FAERS Safety Report 22988845 (Version 2)
Quarter: 2024Q2

REPORT INFORMATION
  Report Type: Spontaneous
  Country: US (occurrence: US)
  Receive Date: 20230926
  Receipt Date: 20240620
  Transmission Date: 20240715
  Serious: Yes (Other)
  Sender: FDA-Public Use
  Company Number: US-MLMSERVICE-20230908-4534642-1

PATIENT
  Age: 17 Year
  Sex: Male

DRUGS (6)
  1. METHOTREXATE [Suspect]
     Active Substance: METHOTREXATE
     Indication: B-cell type acute leukaemia
     Dosage: UNK (INDUCTION CHEMOTHERAPY)
     Route: 037
     Dates: start: 20220222, end: 20220322
  2. METHOTREXATE [Suspect]
     Active Substance: METHOTREXATE
     Dosage: UNK (CONSOLIDATION CHEMOTHERAPY)
     Route: 065
     Dates: start: 20220329, end: 20220819
  3. VINCRISTINE SULFATE [Suspect]
     Active Substance: VINCRISTINE SULFATE
     Indication: B-cell type acute leukaemia
     Dosage: UNK (INDUCTION CHEMOTHERAPY)
     Route: 065
     Dates: start: 20220222, end: 20220322
  4. PEGASPARGASE [Suspect]
     Active Substance: PEGASPARGASE
     Indication: B-cell type acute leukaemia
     Dosage: UNK (INDUCTION CHEMOTHERAPY  VIA A LUMBAR PUNCTURE)
     Route: 065
     Dates: start: 20220222, end: 20220322
  5. DAUNORUBICIN [Suspect]
     Active Substance: DAUNORUBICIN
     Indication: B-cell type acute leukaemia
     Dosage: UNK (INDUCTION CHEMOTHERAPY)
     Route: 065
     Dates: start: 20220222, end: 20220322
  6. TOZINAMERAN [Suspect]
     Active Substance: TOZINAMERAN
     Indication: COVID-19 immunisation
     Dosage: UNK, SINGLE DOSE
     Route: 065
     Dates: start: 202109, end: 202109

REACTIONS (2)
  - Leukopenia [Unknown]
  - Viral infection [Unknown]

NARRATIVE: CASE EVENT DATE: 20220101
